FAERS Safety Report 5362472-8 (Version None)
Quarter: 2007Q2

REPORT INFORMATION
  Report Type: 
  Country: None (occurrence: None)
  Receive Date: 20070530
  Receipt Date: 20070307
  Transmission Date: 20071010
  Serious: No
  Sender: FDA-Public Use
  Company Number: 2007PV032218

PATIENT
  Age: 54 Year
  Sex: Female
  Weight: 73.4827 kg

DRUGS (2)
  1. BYETTA [Suspect]
     Indication: WEIGHT DECREASED
     Dosage: 10 MCG;BID;SC
     Route: 058
     Dates: start: 20070208, end: 20070310
  2. BYETTA [Suspect]
     Dosage: 5 MCG; SC
     Route: 058

REACTIONS (3)
  - CHILLS [None]
  - FATIGUE [None]
  - NAUSEA [None]
